FAERS Safety Report 16410921 (Version 1)
Quarter: 2019Q2

REPORT INFORMATION
  Report Type: Report from Study
  Country: US (occurrence: US)
  Receive Date: 20190610
  Receipt Date: 20190610
  Transmission Date: 20190711
  Serious: Yes (Other)
  Sender: FDA-Public Use
  Company Number: US-HORIZON-DUE-0340-2019

PATIENT
  Age: 64 Year
  Sex: Female

DRUGS (2)
  1. DUEXIS [Suspect]
     Active Substance: FAMOTIDINE\IBUPROFEN
     Indication: PRODUCT USED FOR UNKNOWN INDICATION
     Dosage: 1 TAB TID
     Dates: start: 20190603, end: 20190604
  2. LOSARTAN. [Concomitant]
     Active Substance: LOSARTAN

REACTIONS (4)
  - Cough [Recovering/Resolving]
  - Retching [Recovering/Resolving]
  - Oropharyngeal pain [Not Recovered/Not Resolved]
  - Choking [Recovering/Resolving]

NARRATIVE: CASE EVENT DATE: 20190603
